FAERS Safety Report 23057442 (Version 1)
Quarter: 2023Q4

REPORT INFORMATION
  Report Type: Spontaneous
  Country: US (occurrence: None)
  Receive Date: 20231012
  Receipt Date: 20231012
  Transmission Date: 20240110
  Serious: Yes (Hospitalization)
  Sender: FDA-Public Use
  Company Number: 2023A226363

PATIENT
  Sex: Female

DRUGS (3)
  1. LYNPARZA [Suspect]
     Active Substance: OLAPARIB
     Dosage: 1 FULL TABLET AND A PARTIAL TABLET
     Route: 048
  2. LYNPARZA [Suspect]
     Active Substance: OLAPARIB
     Dosage: 1 150MG TABLET
     Route: 048
  3. LYNPARZA [Suspect]
     Active Substance: OLAPARIB
     Dosage: 150MG, 2 TABLETS, 2 TIMES A DAY
     Route: 048
     Dates: start: 20230904

REACTIONS (5)
  - Myocardial infarction [Unknown]
  - Nausea [Unknown]
  - Dizziness [Unknown]
  - Wrong technique in product usage process [Unknown]
  - Product use issue [Unknown]
